FAERS Safety Report 8393538-6 (Version None)
Quarter: 2012Q2

REPORT INFORMATION
  Report Type: 
  Country: None (occurrence: None)
  Receive Date: 20120529
  Receipt Date: 20120516
  Transmission Date: 20120825
  Serious: Yes (Other)
  Sender: FDA-Public Use
  Company Number: DE-MYLANLABS-2012S1010616

PATIENT
  Age: 37 Year
  Sex: Female
  Weight: 80 kg

DRUGS (7)
  1. PROGESTERONE [Concomitant]
     Indication: PROPHYLAXIS OF ABORTION
     Route: 048
     Dates: start: 20110208
  2. ENOXAPARIN SODIUM [Concomitant]
     Indication: FACTOR V LEIDEN MUTATION
     Route: 058
     Dates: end: 20111103
  3. FEMIBION [Concomitant]
     Indication: PROPHYLAXIS OF NEURAL TUBE DEFECT
     Route: 048
     Dates: start: 20110208, end: 20111103
  4. ARIXTRA [Concomitant]
     Indication: FACTOR V LEIDEN MUTATION
     Route: 058
  5. METOPROLOL TARTRATE [Suspect]
     Indication: HYPERTENSION
     Route: 048
     Dates: start: 20110208, end: 20110701
  6. BISOPROLOL FUMARATE [Suspect]
     Indication: HYPERTENSION
     Route: 048
     Dates: start: 20110702, end: 20110824
  7. FRAGMIN [Concomitant]
     Indication: FACTOR V LEIDEN MUTATION
     Dosage: DOSE UNIT:5000
     Route: 058
     Dates: start: 20110208, end: 20110825

REACTIONS (3)
  - HYPERSENSITIVITY [None]
  - URINARY TRACT INFECTION [None]
  - MATERNAL EXPOSURE DURING PREGNANCY [None]
